FAERS Safety Report 7966318-0 (Version None)
Quarter: 2011Q4

REPORT INFORMATION
  Report Type: 
  Country: None (occurrence: None)
  Receive Date: 20111208
  Receipt Date: 20111125
  Transmission Date: 20120403
  Serious: Yes (Hospitalization)
  Sender: FDA-Public Use
  Company Number: GB-GILEAD-2011-0046973

PATIENT
  Sex: Male

DRUGS (9)
  1. TADALAFIL [Suspect]
     Indication: PULMONARY ARTERIAL HYPERTENSION
     Dosage: UNK
     Route: 048
     Dates: start: 20110401, end: 20111112
  2. TADALAFIL [Suspect]
     Dosage: 40 MG, UNK
     Dates: start: 20110816
  3. AMBRISENTAN [Suspect]
     Indication: PULMONARY ARTERIAL HYPERTENSION
     Dosage: UNK
     Route: 048
     Dates: start: 20110303
  4. AMBRISENTAN [Suspect]
     Dosage: 10 MG, UNK
     Dates: start: 20110816, end: 20111112
  5. HYDROCHLOROTHIAZIDE [Concomitant]
     Dosage: 25 MG, QD
  6. SIMVASTATIN [Concomitant]
     Dosage: 20 MG, QD
  7. AMBRISENTAN [Suspect]
     Dosage: UNK
     Dates: start: 20110401
  8. EPLERENONE [Concomitant]
     Dosage: 25 MG, QD
  9. MARCUMAR [Concomitant]

REACTIONS (1)
  - CONVULSION [None]
